FAERS Safety Report 9557800 (Version 2)
Quarter: 2014Q2

REPORT INFORMATION
  Report Type: Spontaneous
  Country: US (occurrence: US)
  Receive Date: 20130926
  Receipt Date: 20140515
  Transmission Date: 20141212
  Serious: Yes (Death, Hospitalization, Disabling, Other)
  Sender: FDA-Public Use
  Company Number: US-009507513-1309USA012035

PATIENT
  Sex: Male
  Weight: 102 kg

DRUGS (8)
  1. JANUMET [Suspect]
     Indication: TYPE 2 DIABETES MELLITUS
     Dosage: 50/500MG, BID
     Route: 048
     Dates: start: 20080321, end: 201108
  2. JANUMET [Suspect]
     Dosage: 50/1000MG BID
     Route: 048
     Dates: start: 20110520
  3. LEVEMIR [Concomitant]
     Indication: TYPE 2 DIABETES MELLITUS
  4. ACTOS [Concomitant]
     Indication: TYPE 2 DIABETES MELLITUS
  5. SIMVASTATIN [Concomitant]
     Dosage: 40 MG, QD
     Route: 048
  6. CLONIDINE [Concomitant]
     Dosage: 0.1 MG, QD
     Route: 048
  7. ZOLPIDEM TARTRATE [Concomitant]
     Dosage: 10 MG, HS
     Route: 048
  8. PERCOCET [Concomitant]
     Route: 048

REACTIONS (14)
  - Pancreatic carcinoma metastatic [Fatal]
  - Metastases to liver [Fatal]
  - Metastases to lung [Fatal]
  - Metastases to gastrointestinal tract [Fatal]
  - Metastases to spine [Fatal]
  - Renal failure [Unknown]
  - Vision blurred [Unknown]
  - Jaundice [Unknown]
  - Pyrexia [Unknown]
  - Hypercholesterolaemia [Unknown]
  - Oedema peripheral [Unknown]
  - Catheter placement [Unknown]
  - Blood alkaline phosphatase increased [Unknown]
  - Blood albumin decreased [Unknown]
